FAERS Safety Report 4950462-6 (Version None)
Quarter: 2006Q1

REPORT INFORMATION
  Report Type: 
  Country: None (occurrence: None)
  Receive Date: 20060316
  Receipt Date: 20060301
  Transmission Date: 20060701
  Serious: Yes (Disabling)
  Sender: FDA-Public Use
  Company Number: 34064

PATIENT
  Age: 65 Year
  Sex: Male

DRUGS (1)
  1. MIOSTAT [Suspect]
     Indication: MIOSIS
     Dosage: 1.5 ML ONCE IO
     Route: 031

REACTIONS (5)
  - CATARACT OPERATION COMPLICATION [None]
  - DRUG EFFECT DECREASED [None]
  - GLARE [None]
  - HALO VISION [None]
  - MYDRIASIS [None]
